FAERS Safety Report 25456399 (Version 1)
Quarter: 2025Q2

REPORT INFORMATION
  Report Type: Report from Study
  Country: CH (occurrence: CH)
  Receive Date: 20250619
  Receipt Date: 20250619
  Transmission Date: 20250717
  Serious: Yes (Other)
  Sender: AMGEN
  Company Number: CH-AMGEN-CHENI2025119156

PATIENT
  Sex: Female

DRUGS (2)
  1. SOTORASIB [Suspect]
     Active Substance: SOTORASIB
     Indication: Non-small cell lung cancer
     Route: 065
     Dates: start: 20230810
  2. SOTORASIB [Suspect]
     Active Substance: SOTORASIB
     Route: 065
     Dates: start: 202502, end: 20250530

REACTIONS (1)
  - Non-small cell lung cancer [Unknown]
